FAERS Safety Report 8813303 (Version 1)
Quarter: 2012Q4

REPORT INFORMATION
  Report Type: 
  Country: US (occurrence: US)
  Receive Date: 20120927
  Receipt Date: 20120927
  Transmission Date: 20130627
  Serious: No
  Sender: FDA-Public Use
  Company Number: US-AMGEN-USASP2012048916

PATIENT
  Age: 75 Year
  Sex: Male

DRUGS (1)
  1. PROLIA [Suspect]
     Indication: PROSTATE CANCER
     Dosage: 60 mg, q6mo

REACTIONS (3)
  - Injection site reaction [Unknown]
  - Injection site erythema [Unknown]
  - Injection site swelling [Unknown]
